FAERS Safety Report 4438019-7 (Version None)
Quarter: 2004Q3

REPORT INFORMATION
  Report Type: 
  Country: None (occurrence: None)
  Receive Date: 20040831
  Receipt Date: 20040506
  Transmission Date: 20050211
  Serious: No
  Sender: FDA-Public Use
  Company Number: US-GLAXOSMITHKLINE-A0509855A

PATIENT

DRUGS (2)
  1. WELLBUTRIN [Suspect]
     Indication: DEPRESSION
     Route: 048
  2. PAXIL [Concomitant]

REACTIONS (3)
  - AGGRESSION [None]
  - ANGER [None]
  - SUICIDAL IDEATION [None]
